FAERS Safety Report 11425091 (Version 3)
Quarter: 2015Q3

REPORT INFORMATION
  Report Type: Spontaneous
  Country: PE (occurrence: PE)
  Receive Date: 20150827
  Receipt Date: 20150908
  Transmission Date: 20151125
  Serious: Yes (Other)
  Sender: FDA-Public Use
  Company Number: PE-PFIZER INC-2015281920

PATIENT
  Age: 60 Year
  Sex: Female

DRUGS (3)
  1. XANAX XR [Suspect]
     Active Substance: ALPRAZOLAM
     Indication: ANXIETY
     Dosage: 0.5 MG, UNK
     Dates: start: 2007
  2. XANAX XR [Suspect]
     Active Substance: ALPRAZOLAM
     Dosage: 1 MG/DAY
  3. LEVOTIROXIN [Concomitant]
     Indication: HORMONE LEVEL ABNORMAL
     Dosage: 25 MG/DAY

REACTIONS (2)
  - Fall [Unknown]
  - Gait disturbance [Unknown]
